FAERS Safety Report 6425506-5 (Version None)
Quarter: 2009Q4

REPORT INFORMATION
  Report Type: 
  Country: None (occurrence: None)
  Receive Date: 20091103
  Receipt Date: 20091023
  Transmission Date: 20100525
  Serious: Yes (Other)
  Sender: FDA-Public Use
  Company Number: TR-WYE-H11785909

PATIENT
  Age: 55 Year
  Sex: Male

DRUGS (2)
  1. EFFEXOR [Suspect]
     Dates: start: 20051201, end: 20060101
  2. MESALAZINE [Concomitant]
     Indication: COLITIS ULCERATIVE
     Dosage: 2 TO 3 G/DAY
     Dates: start: 20030101

REACTIONS (1)
  - HEPATOTOXICITY [None]
